FAERS Safety Report 5179429-2 (Version None)
Quarter: 2006Q4

REPORT INFORMATION
  Report Type: 
  Country: None (occurrence: None)
  Receive Date: 20061219
  Receipt Date: 20061129
  Transmission Date: 20070319
  Serious: Yes (Hospitalization)
  Sender: FDA-Public Use
  Company Number: JP-ALLERGAN-0608028US

PATIENT
  Age: 2 Year
  Sex: Female

DRUGS (2)
  1. BOTOX [Suspect]
     Indication: TORTICOLLIS
     Dosage: 50 UNITS, SINGLE
     Route: 030
  2. BOTOX [Suspect]
     Dosage: 80 UNITS, SINGLE
     Route: 030

REACTIONS (2)
  - ASTHENIA [None]
  - SALIVARY HYPERSECRETION [None]
